FAERS Safety Report 17800656 (Version 1)
Quarter: 2020Q2

REPORT INFORMATION
  Report Type: Spontaneous
  Country: CN (occurrence: CN)
  Receive Date: 20200519
  Receipt Date: 20200519
  Transmission Date: 20200714
  Serious: Yes (Other)
  Sender: FDA-Public Use
  Company Number: CN-BAXTER-2020BAX010160

PATIENT
  Age: 21 Year
  Sex: Male
  Weight: 45 kg

DRUGS (4)
  1. ENDOXAN [Suspect]
     Active Substance: CYCLOPHOSPHAMIDE
     Indication: ACUTE LEUKAEMIA
     Dosage: ENDOXAN 0.3 G + SODIUM CHLORIDE 250 ML
     Route: 041
     Dates: start: 20190613, end: 20190615
  2. SODIUM CHLORIDE. [Suspect]
     Active Substance: SODIUM CHLORIDE
     Indication: MEDICATION DILUTION
     Dosage: ENDOXAN 0.3 G + SODIUM CHLORIDE 250 ML
     Route: 041
     Dates: start: 20190613, end: 20190615
  3. 5% GLUCOSE  INJECTION [Suspect]
     Active Substance: DEXTROSE
     Indication: MEDICATION DILUTION
     Dosage: 5% GLUCOSE 100 ML + DEXAMETHASONE 10 MG
     Route: 041
     Dates: start: 20190613, end: 20190615
  4. DEXAMETHASONE. [Suspect]
     Active Substance: DEXAMETHASONE
     Indication: PRODUCT USED FOR UNKNOWN INDICATION
     Dosage: 5% GLUCOSE 100 ML + DEXAMETHASONE 10 MG
     Route: 041
     Dates: start: 20190613, end: 20190615

REACTIONS (2)
  - Drug-induced liver injury [Unknown]
  - Transaminases increased [Recovering/Resolving]

NARRATIVE: CASE EVENT DATE: 20190615
